FAERS Safety Report 9227046 (Version 1)
Quarter: 2013Q1

REPORT INFORMATION
  Report Type: Spontaneous
  Country: US (occurrence: None)
  Receive Date: 20120927
  Receipt Date: 20120927
  Transmission Date: 20140127
  Serious: Yes (Other)
  Sender: FDA-Public Use
  Company Number: 2012-01168

PATIENT
  Age: 45 Year
  Sex: Male

DRUGS (10)
  1. DIVALPROEX SODIUM [Suspect]
     Indication: MOOD SWINGS
     Dosage: 1250 MG EVERY MORNING AND 1500 MG EVERY EVENING?
  2. OLANZAPINE (UNKNOWN) [Concomitant]
  3. GEMFIBROZIL (UNKNOWN) [Concomitant]
  4. ATORVASTATIN (UNKNOWN) [Concomitant]
  5. PAROXETINE (UNKNOWN) [Concomitant]
  6. DESMOPRESSIN (UNKNOWN) [Concomitant]
  7. HYDROXYZINE (UNKNOWN) [Concomitant]
  8. ENALAPRIL (UNKNOWN) [Concomitant]
  9. SELENIUM (UNKNOWN) [Concomitant]
  10. ZINC GLUCONATE (UNKNOWN) [Concomitant]

REACTIONS (1)
  - Neutropenia [None]
